FAERS Safety Report 5671226-4 (Version None)
Quarter: 2008Q1

REPORT INFORMATION
  Report Type: 
  Country: None (occurrence: None)
  Receive Date: 20080317
  Receipt Date: 20080317
  Transmission Date: 20080703
  Serious: Yes (Death)
  Sender: FDA-Public Use
  Company Number: None

PATIENT
  Age: 59 Year
  Sex: Male

DRUGS (3)
  1. IFOSFAMIDE [Suspect]
     Indication: NON-HODGKIN'S LYMPHOMA
     Dosage: 3   ONCE A DAY FOR 3 DAYS (IV) - HAD TO STOP 4TH D
     Route: 042
     Dates: start: 20060117
  2. IFOSFAMIDE [Suspect]
     Indication: NON-HODGKIN'S LYMPHOMA
     Dosage: 3   ONCE A DAY FOR 3 DAYS (IV) - HAD TO STOP 4TH D
     Route: 042
     Dates: start: 20060118
  3. IFOSFAMIDE [Suspect]
     Indication: NON-HODGKIN'S LYMPHOMA
     Dosage: 3   ONCE A DAY FOR 3 DAYS (IV) - HAD TO STOP 4TH D
     Route: 042
     Dates: start: 20060119

REACTIONS (10)
  - COMA [None]
  - DYSPHAGIA [None]
  - ILL-DEFINED DISORDER [None]
  - MOUTH HAEMORRHAGE [None]
  - NERVOUS SYSTEM DISORDER [None]
  - ORAL INTAKE REDUCED [None]
  - PLATELET COUNT DECREASED [None]
  - SCREAMING [None]
  - SPEECH DISORDER [None]
  - STARING [None]
